FAERS Safety Report 10516193 (Version 1)
Quarter: 2014Q3

REPORT INFORMATION
  Report Type: Spontaneous
  Country: US (occurrence: None)
  Receive Date: 20140926
  Receipt Date: 20140926
  Transmission Date: 20150326
  Serious: No
  Sender: FDA-Public Use
  Company Number: 1000068119

PATIENT
  Age: 55 Year
  Sex: Female

DRUGS (4)
  1. MIRALAX (POLYETHYLENE GLYCOL 3350) [Concomitant]
  2. CLOMIPRAMINE [Concomitant]
     Active Substance: CLOMIPRAMINE
  3. LINZESS [Suspect]
     Active Substance: LINACLOTIDE
     Indication: CONSTIPATION
     Route: 048
     Dates: start: 201405, end: 201406
  4. KLONOPIN [Concomitant]
     Active Substance: CLONAZEPAM

REACTIONS (1)
  - Abdominal distension [None]

NARRATIVE: CASE EVENT DATE: 201405
